FAERS Safety Report 8501903-9 (Version None)
Quarter: 2012Q3

REPORT INFORMATION
  Report Type: 
  Country: None (occurrence: None)
  Receive Date: 20120711
  Receipt Date: 20120705
  Transmission Date: 20120928
  Serious: Yes (Other)
  Sender: FDA-Public Use
  Company Number: PHHY2012BR049994

PATIENT
  Sex: Male

DRUGS (6)
  1. DIOVAN HCT [Suspect]
     Indication: BLOOD PRESSURE
     Dosage: 1 DF, DAILY
     Route: 048
  2. METOPROLOL SUCCINATE [Concomitant]
     Indication: BLOOD PRESSURE
     Dosage: 1 DF, IN MORNING
  3. SIMVASTATIN [Concomitant]
     Indication: BLOOD CHOLESTEROL
     Dosage: 2 DF, QD(AT NIGHT)
     Route: 048
  4. ASPIRIN [Concomitant]
     Dosage: 2 DF, DAILY
     Route: 048
  5. LEVOTHYROXINE SODIUM [Concomitant]
     Indication: THYROID DISORDER
     Dosage: 1 DF, IN MORNING
  6. INDAPAMIDE [Concomitant]
     Indication: BLOOD PRESSURE
     Dosage: 1 DF, DAILY
     Route: 048

REACTIONS (5)
  - ARRHYTHMIA [None]
  - MUSCULOSKELETAL DISCOMFORT [None]
  - SYNCOPE [None]
  - VENOUS OCCLUSION [None]
  - BLOOD PRESSURE FLUCTUATION [None]
